FAERS Safety Report 7689675-1 (Version None)
Quarter: 2011Q3

REPORT INFORMATION
  Report Type: 
  Country: None (occurrence: None)
  Receive Date: 20110817
  Receipt Date: 20110810
  Transmission Date: 20111222
  Serious: Yes (Life-Threatening, Hospitalization)
  Sender: FDA-Public Use
  Company Number: US-ASTRAZENECA-2011SE47005

PATIENT
  Age: 61 Year
  Sex: Female

DRUGS (6)
  1. CITALOPRAM HYDROBROMIDE [Concomitant]
  2. ALPRAZOLAM [Concomitant]
  3. SEROQUEL [Suspect]
     Indication: BIPOLAR DISORDER
     Route: 048
  4. GABAPENTIN [Concomitant]
  5. MIRTAZAPINE [Concomitant]
  6. PROPRANOLOL [Concomitant]

REACTIONS (3)
  - DRUG DOSE OMISSION [None]
  - SUICIDE ATTEMPT [None]
  - PSYCHIATRIC DECOMPENSATION [None]
